FAERS Safety Report 6496026-7 (Version None)
Quarter: 2009Q4

REPORT INFORMATION
  Report Type: 
  Country: None (occurrence: None)
  Receive Date: 20091214
  Receipt Date: 20090917
  Transmission Date: 20100525
  Serious: No
  Sender: FDA-Public Use
  Company Number: US-BRISTOL-MYERS SQUIBB COMPANY-14783013

PATIENT
  Age: 11 Year
  Sex: Male

DRUGS (4)
  1. ABILIFY [Suspect]
     Route: 048
  2. BUSPAR [Suspect]
  3. CLONIDINE [Concomitant]
  4. DEPAKOTE [Concomitant]

REACTIONS (1)
  - TIC [None]
